FAERS Safety Report 20952881 (Version 1)
Quarter: 2022Q2

REPORT INFORMATION
  Report Type: Spontaneous
  Country: JP (occurrence: JP)
  Receive Date: 20220613
  Receipt Date: 20220613
  Transmission Date: 20220721
  Serious: Yes (Hospitalization)
  Sender: FDA-Public Use
  Company Number: JP-ELI_LILLY_AND_COMPANY-JP202206003517

PATIENT
  Age: 76 Year
  Sex: Female
  Weight: 57.3 kg

DRUGS (23)
  1. ADCIRCA [Suspect]
     Active Substance: TADALAFIL
     Indication: Pulmonary arterial hypertension
     Dosage: 40 MG, UNKNOWN
     Route: 065
     Dates: start: 20190306
  2. UPTRAVI [Suspect]
     Active Substance: SELEXIPAG
     Indication: Pulmonary arterial hypertension
     Dosage: 0.4 MG, DAILY
     Route: 048
     Dates: start: 20170309, end: 20170404
  3. UPTRAVI [Suspect]
     Active Substance: SELEXIPAG
     Dosage: 0.8 MG, DAILY
     Route: 048
     Dates: start: 20170405, end: 20170418
  4. UPTRAVI [Suspect]
     Active Substance: SELEXIPAG
     Dosage: 1.0 MG, DAILY
     Route: 048
     Dates: start: 20170419, end: 20170806
  5. UPTRAVI [Suspect]
     Active Substance: SELEXIPAG
     Dosage: 1.2 MG, DAILY
     Route: 048
     Dates: start: 20170807, end: 20170903
  6. UPTRAVI [Suspect]
     Active Substance: SELEXIPAG
     Dosage: 1.4 MG, DAILY
     Route: 048
     Dates: start: 20170904, end: 20170913
  7. UPTRAVI [Suspect]
     Active Substance: SELEXIPAG
     Dosage: 1.6 MG, DAILY
     Route: 048
     Dates: start: 20170914, end: 20170927
  8. UPTRAVI [Suspect]
     Active Substance: SELEXIPAG
     Dosage: 1.8 MG, DAILY
     Route: 048
     Dates: start: 20170928, end: 20171011
  9. UPTRAVI [Suspect]
     Active Substance: SELEXIPAG
     Dosage: 2 MG, DAILY
     Route: 048
     Dates: start: 20171012, end: 20171025
  10. UPTRAVI [Suspect]
     Active Substance: SELEXIPAG
     Dosage: 2.2 MG, DAILY
     Route: 048
     Dates: start: 20171026, end: 20171121
  11. UPTRAVI [Suspect]
     Active Substance: SELEXIPAG
     Dosage: 2.4 MG, DAILY
     Route: 048
     Dates: start: 20171122, end: 20171205
  12. UPTRAVI [Suspect]
     Active Substance: SELEXIPAG
     Dosage: 2.6 MG, DAILY
     Route: 048
     Dates: start: 20171206
  13. URSO [Concomitant]
     Active Substance: URSODIOL
     Indication: Biliary cirrhosis
     Dosage: UNK, UNKNOWN
     Route: 065
  14. OPSUMIT [Concomitant]
     Active Substance: MACITENTAN
     Indication: Pulmonary arterial hypertension
     Dosage: 10 MG, UNKNOWN
     Route: 065
  15. REVATIO [Concomitant]
     Active Substance: SILDENAFIL CITRATE
     Indication: Product used for unknown indication
     Dosage: 60 MG, UNKNOWN
     Route: 065
     Dates: start: 20190305
  16. WARFARIN [Concomitant]
     Active Substance: WARFARIN
     Indication: Product used for unknown indication
     Dosage: 5 MG, UNKNOWN
     Route: 065
     Dates: start: 20180519
  17. SPIRONOLACTONE [Concomitant]
     Active Substance: SPIRONOLACTONE
     Indication: Pulmonary oedema
     Dosage: 25 MG, UNKNOWN
     Route: 065
     Dates: start: 20170602
  18. LANSOPRAZOLE [Concomitant]
     Active Substance: LANSOPRAZOLE
     Indication: Prophylaxis
     Dosage: 15 MG, UNKNOWN
     Route: 065
  19. BEZAFIBRATE [Concomitant]
     Active Substance: BEZAFIBRATE
     Indication: Hyperlipidaemia
     Dosage: 200 MG, UNKNOWN
     Route: 065
  20. NITRODERM [Concomitant]
     Active Substance: NITROGLYCERIN
     Indication: Prinzmetal angina
     Dosage: 25 MG, UNKNOWN
     Route: 065
  21. DILTIAZEM [Concomitant]
     Active Substance: DILTIAZEM
     Indication: Prinzmetal angina
     Dosage: 100 MG, UNKNOWN
     Route: 065
     Dates: start: 20171221
  22. AZOSEMIDE [Concomitant]
     Active Substance: AZOSEMIDE
     Indication: Product used for unknown indication
     Dosage: 15 MG, UNKNOWN
     Route: 065
     Dates: start: 20190205, end: 20191008
  23. BENIDIPINE [Concomitant]
     Active Substance: BENIDIPINE
     Indication: Prinzmetal angina
     Dosage: 2 MG, UNKNOWN
     Route: 065
     Dates: start: 20191204

REACTIONS (6)
  - Femoral neck fracture [Recovering/Resolving]
  - Fall [Unknown]
  - Platelet count decreased [Not Recovered/Not Resolved]
  - Blood pressure systolic increased [Unknown]
  - Headache [Recovering/Resolving]
  - Diarrhoea [Not Recovered/Not Resolved]

NARRATIVE: CASE EVENT DATE: 20170405
